FAERS Safety Report 7199777-4 (Version None)
Quarter: 2010Q4

REPORT INFORMATION
  Report Type: 
  Country: None (occurrence: None)
  Receive Date: 20101228
  Receipt Date: 20100405
  Transmission Date: 20110411
  Serious: No
  Sender: FDA-Public Use
  Company Number: US-KINGPHARMUSA00001-K201000402

PATIENT
  Sex: Female
  Weight: 68.027 kg

DRUGS (4)
  1. CORGARD [Suspect]
     Indication: CEREBRAL HAEMORRHAGE
     Dosage: 40 MG, QD
     Route: 048
     Dates: start: 19820101
  2. DILANTIN [Concomitant]
     Indication: CEREBRAL HAEMORRHAGE
     Dosage: 100 MG, BID
  3. SYNTHROID [Concomitant]
     Indication: THYROIDECTOMY
     Dosage: 0.15 MG, QD
  4. PREVACID [Concomitant]
     Indication: GASTROOESOPHAGEAL REFLUX DISEASE
     Dosage: 30 MG, QOD

REACTIONS (4)
  - ASTHENIA [None]
  - FATIGUE [None]
  - HEART RATE IRREGULAR [None]
  - OEDEMA PERIPHERAL [None]
